FAERS Safety Report 14627193 (Version 2)
Quarter: 2018Q2

REPORT INFORMATION
  Report Type: Spontaneous
  Country: US (occurrence: US)
  Receive Date: 20180312
  Receipt Date: 20180428
  Transmission Date: 20180711
  Serious: No
  Sender: FDA-Public Use
  Company Number: PHEH2018US008741

PATIENT
  Sex: Male

DRUGS (1)
  1. LATANOPROST. [Suspect]
     Active Substance: LATANOPROST
     Indication: PRODUCT USED FOR UNKNOWN INDICATION
     Route: 047

REACTIONS (1)
  - Accidental exposure to product [Unknown]
